FAERS Safety Report 9852824 (Version 2)
Quarter: 2014Q1

REPORT INFORMATION
  Report Type: Report from Study
  Country: JP (occurrence: JP)
  Receive Date: 20140129
  Receipt Date: 20140228
  Transmission Date: 20141002
  Serious: Yes (Other)
  Sender: FDA-Public Use
  Company Number: JP-B.I. PHARMACEUTICALS,INC./RIDGEFIELD-2014-BI-03596NB

PATIENT
  Age: 75 Year
  Sex: Female
  Weight: 47 kg

DRUGS (5)
  1. PRAZAXA [Suspect]
     Indication: CEREBROVASCULAR ACCIDENT PROPHYLAXIS
     Dosage: 220 MG
     Route: 048
     Dates: start: 20130523
  2. OMEPRAZOLE [Concomitant]
     Dosage: 20 MG
     Route: 048
     Dates: start: 20140107
  3. LASIX [Concomitant]
     Dosage: 2.5 MG
     Route: 048
     Dates: start: 20140107
  4. MAINTATE [Concomitant]
     Indication: ATRIAL FIBRILLATION
     Dosage: 2.5 MG
     Route: 048
  5. FEBURIC [Concomitant]
     Dosage: 20 MG
     Route: 048
     Dates: start: 20140107

REACTIONS (3)
  - Loss of consciousness [Recovered/Resolved]
  - Cardiac failure [Recovered/Resolved]
  - Gastrooesophageal reflux disease [Recovered/Resolved]
